FAERS Safety Report 7677365-0 (Version None)
Quarter: 2011Q3

REPORT INFORMATION
  Report Type: 
  Country: None (occurrence: None)
  Receive Date: 20110811
  Receipt Date: 20110729
  Transmission Date: 20111222
  Serious: Yes (Hospitalization)
  Sender: FDA-Public Use
  Company Number: US-ELI_LILLY_AND_COMPANY-US201108001730

PATIENT
  Sex: Male

DRUGS (3)
  1. ZYPREXA RELPREVV [Suspect]
     Dosage: 405 MG, Q4W (FOR FOURTH INJECTION)
     Route: 065
  2. ZYPREXA RELPREVV [Suspect]
     Indication: SCHIZOPHRENIA
     Dosage: 300 MG, Q2W (300 MG FOR FIRST THREE INJECTIONS)
  3. MARIJUANA [Concomitant]

REACTIONS (3)
  - SCHIZOPHRENIA [None]
  - DRUG ABUSE [None]
  - DRUG EFFECT DECREASED [None]
